FAERS Safety Report 8140601-0 (Version None)
Quarter: 2012Q1

REPORT INFORMATION
  Report Type: 
  Country: None (occurrence: None)
  Receive Date: 20120216
  Receipt Date: 20120213
  Transmission Date: 20120608
  Serious: Yes (Hospitalization)
  Sender: FDA-Public Use
  Company Number: BR-PFIZER INC-2011280345

PATIENT
  Age: 51 Year
  Sex: Female
  Weight: 65 kg

DRUGS (2)
  1. VARENICLINE TARTRATE [Suspect]
     Indication: SMOKING CESSATION THERAPY
     Dosage: 0.5 MG, 1X/DAY EVERY 24 HOURS
     Route: 048
     Dates: start: 20111112
  2. SEROQUEL [Concomitant]
     Indication: SLEEP DISORDER
     Dosage: ONE TABLET OF 25MG, AT NIGHT
     Dates: start: 20100101

REACTIONS (3)
  - NAUSEA [None]
  - EXPIRED DRUG ADMINISTERED [None]
  - LUNG NEOPLASM [None]
